FAERS Safety Report 25442052 (Version 1)
Quarter: 2025Q2

REPORT INFORMATION
  Report Type: Spontaneous
  Country: US (occurrence: US)
  Receive Date: 20250616
  Receipt Date: 20250616
  Transmission Date: 20250716
  Serious: Yes (Other)
  Sender: ASTELLAS
  Company Number: US-ASTELLAS-2025-AER-031119

PATIENT
  Age: 64 Year
  Sex: Male

DRUGS (3)
  1. TACROLIMUS [Suspect]
     Active Substance: TACROLIMUS
     Indication: Renal and liver transplant
     Route: 065
  2. MYCOPHENOLATE MOFETIL [Concomitant]
     Active Substance: MYCOPHENOLATE MOFETIL
     Indication: Renal and liver transplant
     Route: 065
  3. PREDNISONE [Concomitant]
     Active Substance: PREDNISONE
     Indication: Renal and liver transplant
     Route: 065

REACTIONS (6)
  - Acute kidney injury [Recovering/Resolving]
  - Urosepsis [Recovered/Resolved]
  - Malacoplakia [Recovered/Resolved]
  - Escherichia urinary tract infection [Recovered/Resolved]
  - Klebsiella urinary tract infection [Recovered/Resolved]
  - Disease recurrence [Recovering/Resolving]
